FAERS Safety Report 10543791 (Version 2)
Quarter: 2014Q4

REPORT INFORMATION
  Report Type: Other
  Country: DE (occurrence: JP)
  Receive Date: 20141027
  Receipt Date: 20141217
  Transmission Date: 20150529
  Serious: No
  Sender: FDA-Public Use
  Company Number: JP-FRI-1000071827

PATIENT
  Age: 82 Year
  Sex: Male
  Weight: 57 kg

DRUGS (10)
  1. MEMANTINE [Suspect]
     Active Substance: MEMANTINE
     Indication: DEMENTIA ALZHEIMER^S TYPE
     Dosage: 5 MG
     Dates: start: 20140107, end: 20140114
  2. AVOLVE [Concomitant]
     Active Substance: DUTASTERIDE
  3. YOKUKAN-SAN [Concomitant]
     Active Substance: UNSPECIFIED INGREDIENT
     Dates: end: 20140617
  4. DESYREL [Concomitant]
     Active Substance: TRAZODONE HYDROCHLORIDE
     Dates: start: 20140107
  5. HERBESSER [Concomitant]
     Active Substance: DILTIAZEM HYDROCHLORIDE
  6. VESICARE [Concomitant]
     Active Substance: SOLIFENACIN SUCCINATE
     Dates: start: 20130304
  7. DIOVAN [Concomitant]
     Active Substance: VALSARTAN
  8. NEXIUM [Concomitant]
     Active Substance: ESOMEPRAZOLE MAGNESIUM
  9. FEBUXOSTAT. [Concomitant]
     Active Substance: FEBUXOSTAT
  10. URIEF [Concomitant]
     Active Substance: SILODOSIN

REACTIONS (1)
  - Myoclonus [Recovered/Resolved]

NARRATIVE: CASE EVENT DATE: 20140114
